FAERS Safety Report 7074881-X (Version None)
Quarter: 2010Q4

REPORT INFORMATION
  Report Type: 
  Country: None (occurrence: None)
  Receive Date: 20101029
  Receipt Date: 20101025
  Transmission Date: 20110411
  Serious: Yes (Death, Hospitalization, Other)
  Sender: FDA-Public Use
  Company Number: PHHY2010US66430

PATIENT
  Sex: Male
  Weight: 114.31 kg

DRUGS (2)
  1. EXJADE [Suspect]
     Indication: IRON METABOLISM DISORDER
     Dosage: 2000 MG DAILY
     Route: 048
     Dates: start: 20100421
  2. EXJADE [Suspect]
     Indication: MYELODYSPLASTIC SYNDROME

REACTIONS (7)
  - DEATH [None]
  - DIABETES MELLITUS [None]
  - FAILURE TO THRIVE [None]
  - HAEMOSIDEROSIS [None]
  - LOCALISED INFECTION [None]
  - OBESITY [None]
  - QUALITY OF LIFE DECREASED [None]
